FAERS Safety Report 7526707-5 (Version None)
Quarter: 2011Q2

REPORT INFORMATION
  Report Type: 
  Country: None (occurrence: None)
  Receive Date: 20110606
  Receipt Date: 20110531
  Transmission Date: 20111010
  Serious: Yes (Other)
  Sender: FDA-Public Use
  Company Number: US-ELI_LILLY_AND_COMPANY-US201001003865

PATIENT
  Sex: Female
  Weight: 101.59 kg

DRUGS (14)
  1. LASIX [Concomitant]
     Indication: FLUID RETENTION
  2. TRICOR [Concomitant]
     Indication: HYPERCHOLESTEROLAEMIA
  3. CALCIUM CARBONATE [Concomitant]
  4. NEXIUM [Concomitant]
     Indication: GASTROOESOPHAGEAL REFLUX DISEASE
  5. BYETTA [Suspect]
     Dosage: 5 UG, BID
     Route: 058
     Dates: start: 20061108, end: 20070901
  6. NOVOLOG [Concomitant]
     Indication: DIABETES MELLITUS
  7. BETA BLOCKING AGENTS [Concomitant]
  8. ANTIBIOTICS [Concomitant]
  9. HYDROCODONE BITARTRATE [Concomitant]
     Indication: ANALGESIC THERAPY
  10. ACARBOSE [Concomitant]
     Indication: DIABETES MELLITUS
  11. AMBIEN [Concomitant]
     Indication: INSOMNIA
  12. CELEBREX [Concomitant]
     Indication: INFLAMMATION
     Dosage: UNK
     Dates: start: 19990101
  13. ACETAMINOPHEN [Concomitant]
  14. VITAMIN D [Concomitant]
     Dosage: UNK
     Dates: start: 20070101, end: 20090101

REACTIONS (3)
  - PANCREATITIS RELAPSING [None]
  - PANCREATITIS ACUTE [None]
  - OFF LABEL USE [None]
